FAERS Safety Report 6072902-4 (Version None)
Quarter: 2009Q1

REPORT INFORMATION
  Report Type: 
  Country: None (occurrence: None)
  Receive Date: 20090205
  Receipt Date: 20090123
  Transmission Date: 20090719
  Serious: Yes (Hospitalization)
  Sender: FDA-Public Use
  Company Number: 09P-130-0499155-00

PATIENT
  Age: 9 Month
  Sex: Male

DRUGS (5)
  1. SYNAGIS [Suspect]
     Dosage: SEE IMAGE
     Route: 030
     Dates: start: 20081017, end: 20081017
  2. SYNAGIS [Suspect]
     Dosage: SEE IMAGE
     Route: 030
     Dates: start: 20081121, end: 20081121
  3. SYNAGIS [Suspect]
     Dosage: SEE IMAGE
     Route: 030
     Dates: start: 20081216, end: 20081216
  4. SYNAGIS [Suspect]
     Dosage: SEE IMAGE
     Route: 030
     Dates: start: 20090116, end: 20090116
  5. KAPSOVIT (ERGOCALCIFEROL, ASCORBIC ACID, THIAMINE HYDROCHLORIDE, RETIN [Concomitant]

REACTIONS (3)
  - BRONCHIOLITIS [None]
  - RESPIRATORY SYNCYTIAL VIRUS INFECTION [None]
  - WEIGHT DECREASED [None]
